FAERS Safety Report 5816863-9 (Version None)
Quarter: 2008Q3

REPORT INFORMATION
  Report Type: 
  Country: None (occurrence: None)
  Receive Date: 20080721
  Receipt Date: 20080711
  Transmission Date: 20090109
  Serious: Yes (Death)
  Sender: FDA-Public Use
  Company Number: GB-MERCK-98105028

PATIENT
  Age: 22 Year
  Sex: Female

DRUGS (4)
  1. SINGULAIR [Suspect]
     Indication: ASTHMA
     Route: 048
     Dates: start: 19980630, end: 19981001
  2. CEPHALEXIN [Concomitant]
     Indication: TONSILLITIS
     Route: 048
     Dates: start: 19980914, end: 19980921
  3. ALBUTEROL [Concomitant]
  4. BECLOMETHASONE DIPROPIONATE [Concomitant]
     Route: 065

REACTIONS (2)
  - ABORTION SPONTANEOUS [None]
  - DRUG EXPOSURE DURING PREGNANCY [None]
